FAERS Safety Report 16868339 (Version 1)
Quarter: 2019Q3

REPORT INFORMATION
  Report Type: Report from Study
  Country: US (occurrence: US)
  Receive Date: 20190930
  Receipt Date: 20190930
  Transmission Date: 20191005
  Serious: Yes (Hospitalization, Other)
  Sender: FDA-Public Use
  Company Number: US-JNJFOC-20190907309

PATIENT
  Age: 75 Year
  Sex: Male

DRUGS (6)
  1. COMPAZINE                          /00013302/ [Concomitant]
     Active Substance: PROCHLORPERAZINE EDISYLATE
  2. ALLOPURINOL. [Concomitant]
     Active Substance: ALLOPURINOL
  3. MAGNESIUM OXIDE. [Concomitant]
     Active Substance: MAGNESIUM OXIDE
  4. INDAPAMIDE. [Concomitant]
     Active Substance: INDAPAMIDE
  5. LISINOPRIL. [Concomitant]
     Active Substance: LISINOPRIL
  6. IMBRUVICA [Suspect]
     Active Substance: IBRUTINIB
     Indication: CHRONIC LYMPHOCYTIC LEUKAEMIA
     Dosage: 420 MG, QD
     Route: 048
     Dates: start: 20180414, end: 20190822

REACTIONS (2)
  - Haemothorax [Recovering/Resolving]
  - Surgery [Recovered/Resolved]

NARRATIVE: CASE EVENT DATE: 201908
